FAERS Safety Report 11413503 (Version 1)
Quarter: 2015Q3

REPORT INFORMATION
  Report Type: Spontaneous
  Country: US (occurrence: US)
  Receive Date: 20150821
  Receipt Date: 20150821
  Transmission Date: 20151125
  Serious: No
  Sender: FDA-Public Use
  Company Number: US-ELI_LILLY_AND_COMPANY-US201210009563

PATIENT
  Sex: Female

DRUGS (2)
  1. METFORMIN                          /00082701/ [Concomitant]
     Indication: DIABETES MELLITUS
  2. HUMULIN 70/30 [Suspect]
     Active Substance: INSULIN HUMAN
     Indication: DIABETES MELLITUS
     Dosage: 7 U, BID
     Dates: start: 201206

REACTIONS (2)
  - Dyspnoea [Unknown]
  - Weight increased [Unknown]
